FAERS Safety Report 5499150-0 (Version None)
Quarter: 2007Q4

REPORT INFORMATION
  Report Type: 
  Country: None (occurrence: None)
  Receive Date: 20071024
  Receipt Date: 20071012
  Transmission Date: 20080405
  Serious: Yes (Other)
  Sender: FDA-Public Use
  Company Number: 2007333386

PATIENT
  Age: 60 Year
  Sex: Male
  Weight: 70.3 kg

DRUGS (7)
  1. BENADRYL [Suspect]
     Indication: RASH
     Dates: start: 20070920
  2. WARFARIN SODIUM [Suspect]
     Indication: THROMBOSIS PROPHYLAXIS
     Dosage: 2MG QD, ORAL
     Route: 048
     Dates: start: 20070909
  3. INDOCIN [Suspect]
     Dosage: 1 CAPSULE TID, ORAL
     Route: 048
     Dates: start: 20070920, end: 20070923
  4. ACETAMINOPHEN [Concomitant]
  5. DILANTIN KAPSEAL [Concomitant]
  6. PRIMIDONE [Concomitant]
  7. MULTI-VITAMINS [Concomitant]

REACTIONS (4)
  - ANTICONVULSANT DRUG LEVEL DECREASED [None]
  - BLOOD PRESSURE DECREASED [None]
  - CONVULSION [None]
  - LETHARGY [None]
